FAERS Safety Report 10921596 (Version 1)
Quarter: 2015Q1

REPORT INFORMATION
  Report Type: Spontaneous
  Country: AU (occurrence: AU)
  Receive Date: 20150317
  Receipt Date: 20150317
  Transmission Date: 20150721
  Serious: Yes (Other)
  Sender: FDA-Public Use
  Company Number: AU-PFIZER INC-2015095330

PATIENT
  Age: 71 Year
  Sex: Female

DRUGS (2)
  1. SEREVENT [Concomitant]
     Active Substance: SALMETEROL XINAFOATE
     Dosage: UNK
  2. INTAL [Suspect]
     Active Substance: CROMOLYN SODIUM
     Indication: ASTHMA
     Dosage: UNK
     Route: 045
     Dates: start: 20150301

REACTIONS (4)
  - Malaise [Unknown]
  - Dyspnoea [Unknown]
  - Asthma [Unknown]
  - Stress [Unknown]

NARRATIVE: CASE EVENT DATE: 201503
